FAERS Safety Report 5518924-0 (Version None)
Quarter: 2007Q4

REPORT INFORMATION
  Report Type: 
  Country: None (occurrence: None)
  Receive Date: 20071114
  Receipt Date: 20071114
  Transmission Date: 20080405
  Serious: No
  Sender: FDA-Public Use
  Company Number: None

PATIENT
  Age: 53 Year
  Sex: Female
  Weight: 90.7194 kg

DRUGS (1)
  1. CHANTIX [Suspect]
     Indication: SMOKING CESSATION THERAPY
     Dosage: 0.5 TWICE DAILY PO
     Route: 048
     Dates: start: 20071014, end: 20071104

REACTIONS (14)
  - AGGRESSION [None]
  - ANGER [None]
  - ARTHRALGIA [None]
  - CHEST PAIN [None]
  - CONDITION AGGRAVATED [None]
  - COORDINATION ABNORMAL [None]
  - DISORIENTATION [None]
  - FEAR [None]
  - HYPERHIDROSIS [None]
  - MENTAL STATUS CHANGES [None]
  - NIGHTMARE [None]
  - NOCTURIA [None]
  - SUICIDAL IDEATION [None]
  - VERBAL ABUSE [None]
